FAERS Safety Report 4888601-8 (Version None)
Quarter: 2005Q4

REPORT INFORMATION
  Report Type: 
  Country: None (occurrence: None)
  Receive Date: 20051215
  Receipt Date: 20050113
  Transmission Date: 20060501
  Serious: Yes (Hospitalization)
  Sender: FDA-Public Use
  Company Number: 2005013387

PATIENT
  Age: 70 Year
  Sex: Female
  Weight: 60.782 kg

DRUGS (17)
  1. BEXTRA [Suspect]
     Indication: POLYMYALGIA RHEUMATICA
     Dosage: ORAL
     Route: 048
     Dates: start: 20030101
  2. PREDNISONE [Suspect]
     Indication: POLYMYALGIA RHEUMATICA
     Dosage: ORAL
     Route: 048
  3. PAXIL CR [Suspect]
     Indication: ILL-DEFINED DISORDER
     Dosage: ORAL
     Route: 048
  4. DIPHENHYDRAMINE HCL [Concomitant]
  5. LEVOTHYROXINE SODIUM [Concomitant]
  6. SERETIDE MITE (FLUTICASONE PROPIONATE, SALMETEROL XINAFOATE) [Concomitant]
  7. ALENDRONATE SODIUM [Concomitant]
  8. TOCOPHEROL (TOCOPHEROL) [Concomitant]
  9. CALCIUM PLUS (CALCIUM PLUS) [Concomitant]
  10. FOLIC ACID [Concomitant]
  11. VITAMINS (VITAMINS) [Concomitant]
  12. MONTELUKAST SODIUM (MONTELUKAST SODIUM) [Concomitant]
  13. HYZAAR [Concomitant]
  14. BUDESONIDE [Concomitant]
  15. COMBIVENT [Concomitant]
  16. COMBIVENT [Concomitant]
  17. HYDROCODONE BITARTRATE [Concomitant]

REACTIONS (11)
  - BLOOD PRESSURE INCREASED [None]
  - CANDIDIASIS [None]
  - COUGH [None]
  - DIVERTICULITIS [None]
  - FEELING ABNORMAL [None]
  - PALPITATIONS [None]
  - PERIORBITAL HAEMATOMA [None]
  - PHOTOPSIA [None]
  - SEDATION [None]
  - SLEEP DISORDER [None]
  - VOMITING [None]
